FAERS Safety Report 10267779 (Version 2)
Quarter: 2014Q2

REPORT INFORMATION
  Report Type: Spontaneous
  Country: US (occurrence: None)
  Receive Date: 20140625
  Receipt Date: 20140625
  Transmission Date: 20141212
  Serious: Yes (Hospitalization)
  Sender: FDA-Public Use
  Company Number: 201406039

PATIENT
  Age: 56 Year
  Sex: Male
  Weight: 120.2 kg

DRUGS (8)
  1. XIAFLEX [Suspect]
     Indication: PEYRONIE^S DISEASE
     Dosage: INTRALESIONAL
     Dates: start: 20140606, end: 20140606
  2. PLAVIX (CLOPIDOGREL BISULFATE) (CLOPIDOGREL BISULFATE) [Concomitant]
  3. COREG (CARVEDILOL) [Concomitant]
  4. PRAVASTATIN (PRAVASTATIN) [Concomitant]
  5. LANTUS (INSULIN GLARGINE) [Concomitant]
  6. ASPIRIN (ACETYLSALICYLIC ACID) [Concomitant]
  7. JANUMET (METFORMIN  HYDROCHLORIDE, SITAGLIPTIN PHOSPHATE MONOHYDRATE) [Concomitant]
  8. FISH OIL (FISH OIL) [Concomitant]

REACTIONS (1)
  - Myocardial infarction [None]
